FAERS Safety Report 9284013 (Version 1)
Quarter: 2013Q2

REPORT INFORMATION
  Report Type: Spontaneous
  Country: HU (occurrence: HU)
  Receive Date: 20130510
  Receipt Date: 20130510
  Transmission Date: 20140414
  Serious: Yes (Hospitalization)
  Sender: FDA-Public Use
  Company Number: PHHY2013HU045585

PATIENT
  Age: 67 Year
  Sex: Female
  Weight: 71.5 kg

DRUGS (2)
  1. VALSARTAN SANDOZ [Suspect]
     Indication: HYPERTENSION
     Dosage: 160 MG, QD
     Route: 048
     Dates: end: 20121207
  2. VALSARTAN+HYDROCHLOROTHIAZIDE SANDOZ [Suspect]
     Route: 048
     Dates: end: 20121207

REACTIONS (4)
  - Dry mouth [Recovering/Resolving]
  - Choking [Recovering/Resolving]
  - Swollen tongue [Recovering/Resolving]
  - Blood uric acid increased [Recovering/Resolving]
